APPROVED DRUG PRODUCT: PROPOFOL
Active Ingredient: PROPOFOL
Strength: 10MG/ML
Dosage Form/Route: INJECTABLE;INJECTION
Application: A205067 | Product #001 | TE Code: AB
Applicant: DR REDDYS LABORATORIES INC
Approved: Nov 15, 2018 | RLD: No | RS: No | Type: RX